FAERS Safety Report 4398346-9 (Version None)
Quarter: 2004Q3

REPORT INFORMATION
  Report Type: 
  Country: None (occurrence: None)
  Receive Date: 20040714
  Receipt Date: 20040714
  Transmission Date: 20050211
  Serious: Yes (Hospitalization)
  Sender: FDA-Public Use
  Company Number: None

PATIENT
  Age: 25 Year
  Sex: Female
  Weight: 86.2 kg

DRUGS (5)
  1. WARFARIN SODIUM [Suspect]
     Indication: CEREBROVASCULAR ACCIDENT
     Dosage: 5 MG PO DAILY
     Route: 048
  2. WARFARIN SODIUM [Suspect]
     Indication: DEEP VEIN THROMBOSIS
     Dosage: 5 MG PO DAILY
     Route: 048
  3. CELLCEPT [Concomitant]
  4. PLAQUENIL [Concomitant]
  5. PREDNISONE [Concomitant]

REACTIONS (5)
  - ABDOMINAL PAIN [None]
  - CONTUSION [None]
  - EPISTAXIS [None]
  - HAEMORRHAGIC OVARIAN CYST [None]
  - INTERNATIONAL NORMALISED RATIO INCREASED [None]
